FAERS Safety Report 21542095 (Version 1)
Quarter: 2022Q4

REPORT INFORMATION
  Report Type: Report from Study
  Country: US (occurrence: US)
  Receive Date: 20221102
  Receipt Date: 20221102
  Transmission Date: 20230112
  Serious: No
  Sender: FDA-Public Use
  Company Number: US-ABBVIE-4147390

PATIENT
  Sex: Female

DRUGS (2)
  1. HUMIRA [Suspect]
     Active Substance: ADALIMUMAB
     Indication: Rheumatoid arthritis
     Dosage: CITRATE FREE?FORM STRENGTH: 40 MILLIGRAM
     Route: 058
  2. Pfizer biotech covid-19 vaccine [Concomitant]
     Indication: COVID-19 immunisation

REACTIONS (3)
  - Drug ineffective [Unknown]
  - Gait disturbance [Unknown]
  - Arthralgia [Unknown]
